FAERS Safety Report 18932981 (Version 2)
Quarter: 2021Q1

REPORT INFORMATION
  Report Type: Spontaneous
  Country: US (occurrence: US)
  Receive Date: 20210224
  Receipt Date: 20210304
  Transmission Date: 20210420
  Serious: No
  Sender: FDA-Public Use
  Company Number: US-SA-2021SA060707

PATIENT
  Age: 37 Year
  Sex: Female

DRUGS (10)
  1. METOPROLOL SUCCINATE. [Concomitant]
     Active Substance: METOPROLOL SUCCINATE
  2. METFORMIN [Concomitant]
     Active Substance: METFORMIN HYDROCHLORIDE
  3. DULOXETINE. [Concomitant]
     Active Substance: DULOXETINE
  4. EZETIMIBE. [Concomitant]
     Active Substance: EZETIMIBE
  5. DUPIXENT [Suspect]
     Active Substance: DUPILUMAB
     Dosage: 300 MG, QOW
     Route: 058
  6. CEFALEXIN [Concomitant]
     Active Substance: CEPHALEXIN
  7. CLINDAMYCIN. [Concomitant]
     Active Substance: CLINDAMYCIN
  8. DIVALPROEX [Concomitant]
     Active Substance: DIVALPROEX SODIUM
  9. DUPIXENT [Suspect]
     Active Substance: DUPILUMAB
     Indication: ASTHMA
     Dosage: 600 MG, 1X
     Route: 058
     Dates: start: 20200901, end: 20200901
  10. METHYLPRED [Concomitant]
     Active Substance: METHYLPREDNISOLONE

REACTIONS (3)
  - Injection site reaction [Unknown]
  - Incorrect dose administered [Unknown]
  - Unevaluable event [Unknown]

NARRATIVE: CASE EVENT DATE: 20200901
